FAERS Safety Report 15360110 (Version 1)
Quarter: 2018Q3

REPORT INFORMATION
  Report Type: Spontaneous
  Country: US (occurrence: US)
  Receive Date: 20180907
  Receipt Date: 20180907
  Transmission Date: 20181010
  Serious: Yes (Other)
  Sender: FDA-Public Use
  Company Number: US-ROCHE-2178745

PATIENT
  Age: 62 Year
  Sex: Male

DRUGS (2)
  1. OCREVUS [Suspect]
     Active Substance: OCRELIZUMAB
     Route: 065
     Dates: start: 20180822
  2. OCREVUS [Suspect]
     Active Substance: OCRELIZUMAB
     Indication: SECONDARY PROGRESSIVE MULTIPLE SCLEROSIS
     Dosage: ONGOING: UNKNOWN
     Route: 065
     Dates: start: 2017

REACTIONS (9)
  - Dizziness [Not Recovered/Not Resolved]
  - Tooth deposit [Unknown]
  - Nausea [Not Recovered/Not Resolved]
  - Immunodeficiency [Unknown]
  - Vision blurred [Not Recovered/Not Resolved]
  - Disease recurrence [Unknown]
  - Procedural haemorrhage [Unknown]
  - Headache [Recovered/Resolved]
  - Gingivitis [Unknown]

NARRATIVE: CASE EVENT DATE: 201808
